FAERS Safety Report 5104023-9 (Version None)
Quarter: 2006Q3

REPORT INFORMATION
  Report Type: 
  Country: None (occurrence: None)
  Receive Date: 20060911
  Receipt Date: 20060829
  Transmission Date: 20061208
  Serious: Yes (Death)
  Sender: FDA-Public Use
  Company Number: 2006104709

PATIENT
  Sex: Male

DRUGS (3)
  1. VORICONAZOLE                   (VORICONAZOLE) [Suspect]
     Indication: BRONCHOPULMONARY ASPERGILLOSIS
  2. ANTIBIOTICS [Concomitant]
  3. IMMUNOSUPPRESSEURS        (IMMUNOSUPPRESSIVE AGENTS) [Concomitant]

REACTIONS (2)
  - HAEMOPTYSIS [None]
  - RESPIRATORY DISTRESS [None]
